FAERS Safety Report 4887995-7 (Version None)
Quarter: 2006Q1

REPORT INFORMATION
  Report Type: 
  Country: None (occurrence: None)
  Receive Date: 20060123
  Receipt Date: 20050718
  Transmission Date: 20060701
  Serious: Yes (Hospitalization, Other)
  Sender: FDA-Public Use
  Company Number: US-MERCK-0507USA02861

PATIENT
  Age: 54 Year
  Sex: Female
  Weight: 82 kg

DRUGS (4)
  1. VIOXX [Suspect]
     Indication: PAIN IN EXTREMITY
     Route: 048
     Dates: end: 20040101
  2. BEXTRA [Concomitant]
     Route: 065
  3. TEGRETOL [Concomitant]
     Route: 065
  4. TRIAMTERENE [Concomitant]
     Route: 065

REACTIONS (4)
  - ARTERIAL DISORDER [None]
  - CEREBROVASCULAR ACCIDENT [None]
  - CHEST PAIN [None]
  - LUNG DISORDER [None]
